FAERS Safety Report 17797178 (Version 1)
Quarter: 2020Q2

REPORT INFORMATION
  Report Type: Spontaneous
  Country: PL (occurrence: PL)
  Receive Date: 20200518
  Receipt Date: 20200518
  Transmission Date: 20200714
  Serious: Yes (Other)
  Sender: FDA-Public Use
  Company Number: PL-TEVA-2020-PL-1237966

PATIENT
  Age: 70 Year
  Sex: Female

DRUGS (1)
  1. OLFEN-75 [Suspect]
     Active Substance: DICLOFENAC SODIUM
     Indication: SCIATICA
     Dosage: 2 DOSAGE FORMS DAILY;
     Route: 065
     Dates: start: 20200507, end: 20200509

REACTIONS (2)
  - Haematochezia [Unknown]
  - Abdominal pain [Unknown]

NARRATIVE: CASE EVENT DATE: 202005
